FAERS Safety Report 13824733 (Version 1)
Quarter: 2017Q3

REPORT INFORMATION
  Report Type: Spontaneous
  Country: US (occurrence: US)
  Receive Date: 20170801
  Receipt Date: 20170801
  Transmission Date: 20171127
  Serious: Yes (Disabling)
  Sender: FDA-Public Use
  Company Number: None

PATIENT
  Age: 43 Year
  Sex: Female
  Weight: 99 kg

DRUGS (15)
  1. ESCITALOPRAM [Concomitant]
     Active Substance: ESCITALOPRAM OXALATE
  2. IPRATROPIUM BROMIDE. [Concomitant]
     Active Substance: IPRATROPIUM BROMIDE
  3. OMEGA 3 FISH OIL [Concomitant]
     Active Substance: FISH OIL\OMEGA-3 FATTY ACIDS
  4. CRANBERRY EXTRACT [Concomitant]
     Active Substance: CRANBERRY JUICE
  5. CURCUMIN [Concomitant]
     Active Substance: CURCUMIN
  6. BIOTIN [Concomitant]
     Active Substance: BIOTIN
  7. VITAMIN C POWDER [Concomitant]
  8. CIPROFLOXACIN HCL [Suspect]
     Active Substance: CIPROFLOXACIN HYDROCHLORIDE
     Indication: CITROBACTER TEST POSITIVE
     Dosage: ?          QUANTITY:1 TABLET(S);?
     Route: 048
     Dates: start: 20170620, end: 20170620
  9. NYSTATIN. [Concomitant]
     Active Substance: NYSTATIN
  10. VITAMIN E [Concomitant]
     Active Substance: .ALPHA.-TOCOPHEROL
  11. VITAMIN D [Concomitant]
     Active Substance: CHOLECALCIFEROL
  12. ZINC LOZENGES [Concomitant]
  13. LITHIUM CARBONATE. [Concomitant]
     Active Substance: LITHIUM CARBONATE
  14. CLONAZEPAM. [Concomitant]
     Active Substance: CLONAZEPAM
  15. NANOGREENS (GREENFOOD SUPPLEMENT POWDER) [Concomitant]

REACTIONS (16)
  - Nervousness [None]
  - Tachycardia [None]
  - Hallucination, auditory [None]
  - Swelling face [None]
  - Neuropathy peripheral [None]
  - Anxiety [None]
  - Peripheral swelling [None]
  - Joint crepitation [None]
  - Tremor [None]
  - Musculoskeletal stiffness [None]
  - Feeling abnormal [None]
  - Headache [None]
  - Blood glucose abnormal [None]
  - Chills [None]
  - Arthralgia [None]
  - Lip swelling [None]

NARRATIVE: CASE EVENT DATE: 20170620
